FAERS Safety Report 12851012 (Version 1)
Quarter: 2016Q4

REPORT INFORMATION
  Report Type: Spontaneous
  Country: GB (occurrence: GB)
  Receive Date: 20161015
  Receipt Date: 20161015
  Transmission Date: 20170207
  Serious: Yes (Life-Threatening, Hospitalization)
  Sender: FDA-Public Use
  Company Number: GB-ACCORD-044847

PATIENT
  Age: 77 Year
  Sex: Female
  Weight: 85 kg

DRUGS (16)
  1. CALCICHEW D3 [Concomitant]
     Active Substance: CALCIUM\CHOLECALCIFEROL
  2. SIMVASTATIN. [Concomitant]
     Active Substance: SIMVASTATIN
  3. HYDROXYCHLOROQUINE [Concomitant]
     Active Substance: HYDROXYCHLOROQUINE
  4. SALAZOPYRIN [Concomitant]
     Active Substance: SULFASALAZINE
  5. ALENDRONATE SODIUM/ALENDRONIC ACID [Concomitant]
  6. SALBUTAMOL [Concomitant]
     Active Substance: ALBUTEROL
     Dosage: 100MCG/ DOSE.
     Route: 055
  7. CORO-NITRO [Concomitant]
     Dosage: 400MCG / DOSE
     Route: 060
  8. PARACETAMOL [Concomitant]
     Active Substance: ACETAMINOPHEN
  9. LEVOTHYROXINE. [Concomitant]
     Active Substance: LEVOTHYROXINE
     Dosage: ALSO RECEIVED 50 MCG
  10. HYPROMELLOSE/HYPROMELLOSE PHTHALATE [Concomitant]
     Route: 047
  11. LANSOPRAZOLE. [Concomitant]
     Active Substance: LANSOPRAZOLE
  12. SERETIDE [Concomitant]
     Active Substance: FLUTICASONE PROPIONATE\SALMETEROL XINAFOATE
     Route: 055
  13. TIOTROPIUM [Concomitant]
     Active Substance: TIOTROPIUM
  14. RAMIPRIL. [Suspect]
     Active Substance: RAMIPRIL
     Indication: HYPERTENSION
     Route: 048
     Dates: start: 20130123, end: 20160923
  15. FOLIC ACID. [Concomitant]
     Active Substance: FOLIC ACID
  16. LACRI-LUBE [Concomitant]
     Route: 047

REACTIONS (2)
  - Local swelling [Unknown]
  - Angioedema [Recovering/Resolving]

NARRATIVE: CASE EVENT DATE: 20160922
